FAERS Safety Report 15701559 (Version 1)
Quarter: 2018Q4

REPORT INFORMATION
  Report Type: Spontaneous
  Country: ES (occurrence: ES)
  Receive Date: 20181208
  Receipt Date: 20181208
  Transmission Date: 20190205
  Serious: Yes (Hospitalization, Other)
  Sender: FDA-Public Use
  Company Number: ES-DRREDDYS-GER/SPN/18/0098527

PATIENT
  Age: 23 Year
  Sex: Male

DRUGS (13)
  1. METHOTREXATE SODIUM. [Suspect]
     Active Substance: METHOTREXATE SODIUM
     Indication: ACUTE LYMPHOCYTIC LEUKAEMIA
     Dosage: CONSOLIDATION TREATMENT, REGIMEN 1, AT HIGH DOSE
     Dates: start: 20130323, end: 20130725
  2. ARA-C [Suspect]
     Active Substance: CYTARABINE
     Route: 051
  3. IMATINIB. [Suspect]
     Active Substance: IMATINIB MESYLATE
     Dosage: CONSOLIDATION TREATMENT, REGIMEN 2
     Dates: start: 20130325, end: 20130725
  4. METHOTREXATE SODIUM. [Suspect]
     Active Substance: METHOTREXATE SODIUM
     Dosage: MAINTENANCE TREATMENT, REGIMEN 2,
     Route: 065
     Dates: start: 20131022
  5. DAUNORUBICIN HYDROCHLORIDE. [Suspect]
     Active Substance: DAUNORUBICIN HYDROCHLORIDE
     Indication: ACUTE LYMPHOCYTIC LEUKAEMIA
     Dosage: INDUCTION TREATMENT
     Dates: start: 20130212
  6. IMATINIB. [Suspect]
     Active Substance: IMATINIB MESYLATE
     Indication: ACUTE LYMPHOCYTIC LEUKAEMIA
     Dosage: INDUCTION TREATMENT REGIMEN 1?600 MG, QD
     Dates: start: 20130212
  7. METHOTREXATE SODIUM. [Suspect]
     Active Substance: METHOTREXATE SODIUM
     Route: 065
     Dates: start: 20131023
  8. ARA-C [Suspect]
     Active Substance: CYTARABINE
     Indication: ACUTE LYMPHOCYTIC LEUKAEMIA
     Dosage: CONSOLIDATION TREATMENT, REGIMEN 1, AT HIGH DOSE
     Route: 051
     Dates: start: 20130325, end: 20130725
  9. MERCAPTOPURINE. [Suspect]
     Active Substance: MERCAPTOPURINE
     Indication: ACUTE LYMPHOCYTIC LEUKAEMIA
     Dosage: MAINTENANCE TREATMENT, REGIMEN 1,
     Dates: start: 20131022
  10. GENOXAL [Suspect]
     Active Substance: CYCLOPHOSPHAMIDE
     Indication: ACUTE LYMPHOCYTIC LEUKAEMIA
     Dosage: REGIMEN 1, CONDITIONING REGIMEN
     Dates: start: 20130823
  11. VINCRISTINE SULFATE. [Suspect]
     Active Substance: VINCRISTINE SULFATE
     Indication: ACUTE LYMPHOCYTIC LEUKAEMIA
     Dosage: INDUCTION TREATMENT
     Dates: start: 20130212
  12. PREDNISONE. [Suspect]
     Active Substance: PREDNISONE
     Indication: ACUTE LYMPHOCYTIC LEUKAEMIA
     Dosage: INDUCTION TREATMENT, REGIMEN 1,
     Dates: start: 20130212
  13. IMATINIB. [Suspect]
     Active Substance: IMATINIB MESYLATE
     Dosage: CONSOLIDATION TREATMENT, REGIMEN 3
     Route: 065
     Dates: start: 20131022

REACTIONS (3)
  - Musculoskeletal chest pain [Unknown]
  - Acute lymphocytic leukaemia recurrent [Unknown]
  - Pyrexia [Unknown]

NARRATIVE: CASE EVENT DATE: 20140415
